FAERS Safety Report 8908183 (Version 1)
Quarter: 2012Q4

REPORT INFORMATION
  Report Type: 
  Country: US (occurrence: US)
  Receive Date: 20121113
  Receipt Date: 20121113
  Transmission Date: 20130627
  Serious: No
  Sender: FDA-Public Use
  Company Number: US-AMGEN-USASP2012064817

PATIENT
  Age: 76 Year
  Sex: Female

DRUGS (1)
  1. ARANESP [Suspect]
     Indication: PRODUCT USED FOR UNKNOWN INDICATION
     Dosage: UNK
     Dates: start: 2009

REACTIONS (6)
  - Vaginal disorder [Unknown]
  - Incontinence [Unknown]
  - Carpal tunnel syndrome [Unknown]
  - Eyelid ptosis [Unknown]
  - Tooth fracture [Unknown]
  - Tongue injury [Unknown]
